FAERS Safety Report 5719923-6 (Version None)
Quarter: 2008Q2

REPORT INFORMATION
  Report Type: 
  Country: None (occurrence: None)
  Receive Date: 20080424
  Receipt Date: 20080415
  Transmission Date: 20081010
  Serious: Yes (Other)
  Sender: FDA-Public Use
  Company Number: 2004-11-0729

PATIENT
  Age: 54 Year
  Sex: Female
  Weight: 68.0396 kg

DRUGS (8)
  1. PEG-INTRON [Suspect]
     Indication: HEPATITIS C
     Dosage: 96 MCG;QW; SC; 72 MCG; QW; SC;  48 MCG;QW; SC
     Route: 058
     Dates: start: 20021207, end: 20030209
  2. PEG-INTRON [Suspect]
     Indication: HEPATITIS C
     Dosage: 96 MCG;QW; SC; 72 MCG; QW; SC;  48 MCG;QW; SC
     Route: 058
     Dates: start: 20030210, end: 20030218
  3. PEG-INTRON [Suspect]
     Indication: HEPATITIS C
     Dosage: 96 MCG;QW; SC; 72 MCG; QW; SC;  48 MCG;QW; SC
     Route: 058
     Dates: start: 20030219, end: 20030520
  4. REBETOL [Suspect]
     Indication: HEPATITIS C
     Dosage: 1000 MG; QD; PO;  800 MG; QD; PO
     Route: 048
     Dates: start: 20021207, end: 20030213
  5. REBETOL [Suspect]
     Indication: HEPATITIS C
     Dosage: 1000 MG; QD; PO;  800 MG; QD; PO
     Route: 048
     Dates: start: 20030214, end: 20030520
  6. ACETAMINOPHEN [Concomitant]
  7. CALCIUM [Concomitant]
  8. PREMARIN [Concomitant]

REACTIONS (33)
  - ACTIVITIES OF DAILY LIVING IMPAIRED [None]
  - AMNESIA [None]
  - ANAEMIA [None]
  - ANGER [None]
  - ANXIETY [None]
  - APHASIA [None]
  - APRAXIA [None]
  - ARTHRALGIA [None]
  - BACK PAIN [None]
  - BONE PAIN [None]
  - CARDIAC DISORDER [None]
  - COGNITIVE DISORDER [None]
  - CRYING [None]
  - DEMENTIA [None]
  - DEPRESSION [None]
  - DRUG INTOLERANCE [None]
  - ELECTROENCEPHALOGRAM ABNORMAL [None]
  - EMOTIONAL DISORDER [None]
  - FATIGUE [None]
  - HEADACHE [None]
  - HEART RATE INCREASED [None]
  - HYPERVENTILATION [None]
  - IMPAIRED WORK ABILITY [None]
  - INJECTION SITE REACTION [None]
  - LEARNING DISORDER [None]
  - LOSS OF CONSCIOUSNESS [None]
  - MEMORY IMPAIRMENT [None]
  - MOTOR DYSFUNCTION [None]
  - NEUTROPENIA [None]
  - PSYCHOTIC DISORDER [None]
  - SINUSITIS [None]
  - SUICIDAL IDEATION [None]
  - TOXIC ENCEPHALOPATHY [None]
